FAERS Safety Report 4488159-1 (Version None)
Quarter: 2004Q4

REPORT INFORMATION
  Report Type: 
  Country: None (occurrence: None)
  Receive Date: 20041022
  Receipt Date: 20041007
  Transmission Date: 20050328
  Serious: Yes (Hospitalization)
  Sender: FDA-Public Use
  Company Number: A02200403014

PATIENT
  Age: 68 Year
  Sex: Male

DRUGS (7)
  1. PLAVIX [Suspect]
     Indication: ACUTE CORONARY SYNDROME
     Route: 048
     Dates: start: 20040301
  2. PLAVIX [Suspect]
     Indication: CORONARY ANGIOPLASTY
     Route: 048
     Dates: start: 20040301
  3. PLAVIX [Suspect]
     Indication: STENT PLACEMENT
     Route: 048
     Dates: start: 20040301
  4. KARDEGIC - (ACETYLSALICYLATE LYSINE) - POWDER - UNIT DOSE: UNKNOWN [Suspect]
     Indication: ACUTE CORONARY SYNDROME
     Route: 048
     Dates: start: 20040301
  5. KARDEGIC - (ACETYLSALICYLATE LYSINE) - POWDER - UNIT DOSE: UNKNOWN [Suspect]
     Indication: CORONARY ANGIOPLASTY
     Route: 048
     Dates: start: 20040301
  6. KARDEGIC - (ACETYLSALICYLATE LYSINE) - POWDER - UNIT DOSE: UNKNOWN [Suspect]
     Indication: STENT PLACEMENT
     Route: 048
     Dates: start: 20040301
  7. ACEBUTOLOL [Concomitant]

REACTIONS (3)
  - HAEMATEMESIS [None]
  - MALLORY-WEISS SYNDROME [None]
  - SUPRAVENTRICULAR TACHYCARDIA [None]
